FAERS Safety Report 11287780 (Version 3)
Quarter: 2015Q4

REPORT INFORMATION
  Report Type: Report from Study
  Country: US (occurrence: US)
  Receive Date: 20150721
  Receipt Date: 20151019
  Transmission Date: 20160304
  Serious: Yes (Hospitalization, Other)
  Sender: FDA-Public Use
  Company Number: US-GILEAD-2015-0163213

PATIENT
  Age: 76 Year
  Sex: Female
  Weight: 45.35 kg

DRUGS (10)
  1. AMBRISENTAN [Suspect]
     Active Substance: AMBRISENTAN
     Indication: PULMONARY HYPERTENSION
     Dosage: 5 MG, QD
     Route: 065
     Dates: start: 20131030
  2. VALIUM [Concomitant]
     Active Substance: DIAZEPAM
     Indication: MUSCLE SPASMS
     Dosage: UNK
     Dates: start: 20150710
  3. TYLENOL [Concomitant]
     Active Substance: ACETAMINOPHEN
     Indication: PAIN
     Dosage: UNK
     Dates: start: 20100804
  4. AMBRISENTAN [Suspect]
     Active Substance: AMBRISENTAN
     Indication: SCLERODERMA
  5. OXYGEN. [Concomitant]
     Active Substance: OXYGEN
     Dosage: UNK
     Dates: start: 20150213
  6. PILOCARPINE. [Concomitant]
     Active Substance: PILOCARPINE
     Dosage: UNK
     Dates: start: 20100804
  7. PRILOSEC [Concomitant]
     Active Substance: OMEPRAZOLE MAGNESIUM
     Dosage: UNK
     Dates: start: 20150710
  8. RESTASIS [Concomitant]
     Active Substance: CYCLOSPORINE
     Dosage: UNK
     Dates: start: 20100804
  9. BACLOFEN. [Concomitant]
     Active Substance: BACLOFEN
     Dosage: UNK
     Dates: start: 20150213
  10. NORCO [Concomitant]
     Active Substance: ACETAMINOPHEN\HYDROCODONE BITARTRATE
     Indication: ARTHRITIS
     Dosage: UNK
     Dates: start: 20150526

REACTIONS (7)
  - Gouty arthritis [Unknown]
  - Obstruction gastric [Unknown]
  - Asthenia [Unknown]
  - Abasia [Unknown]
  - Blood count abnormal [Unknown]
  - Systemic lupus erythematosus [Unknown]
  - Blood pressure abnormal [Unknown]
